FAERS Safety Report 13044263 (Version 1)
Quarter: 2016Q4

REPORT INFORMATION
  Report Type: Spontaneous
  Country: US (occurrence: US)
  Receive Date: 20161220
  Receipt Date: 20161220
  Transmission Date: 20170207
  Serious: No
  Sender: FDA-Public Use
  Company Number: US-ROCHE-1034352

PATIENT
  Sex: Male

DRUGS (3)
  1. ZELBORAF [Suspect]
     Active Substance: VEMURAFENIB
     Indication: METASTATIC MALIGNANT MELANOMA
     Dosage: 2 IN MORNING AND 2 IN EVENING
     Route: 048
     Dates: start: 20120118, end: 20120119
  2. ZELBORAF [Suspect]
     Active Substance: VEMURAFENIB
     Dosage: 4 IN MORNING AND 4 IN EVENING
     Route: 048
     Dates: start: 20120122, end: 20120123
  3. ZELBORAF [Suspect]
     Active Substance: VEMURAFENIB
     Dosage: IN MORNING AND 3 IN EVENING
     Route: 048
     Dates: start: 20120120, end: 20120121

REACTIONS (3)
  - Abdominal pain upper [Unknown]
  - Gastric disorder [Unknown]
  - Emotional disorder [Unknown]
